FAERS Safety Report 5087847-6 (Version None)
Quarter: 2006Q3

REPORT INFORMATION
  Report Type: 
  Country: None (occurrence: None)
  Receive Date: 20060824
  Receipt Date: 20060821
  Transmission Date: 20061208
  Serious: Yes (Death, Life-Threatening, Hospitalization, Disabling)
  Sender: FDA-Public Use
  Company Number: GB-GLAXOSMITHKLINE-B0435332A

PATIENT
  Sex: Female
  Weight: 150 kg

DRUGS (9)
  1. ERYTHROMYCIN [Suspect]
     Indication: DRUG USE FOR UNKNOWN INDICATION
     Route: 048
  2. SIMVASTATIN [Suspect]
     Route: 048
  3. AMITRIPTYLINE HCL [Concomitant]
     Route: 048
  4. BUMETANIDE [Concomitant]
     Dosage: 5MG PER DAY
     Route: 048
  5. DIHYDROCODEINE [Concomitant]
     Dosage: 60MG PER DAY
     Route: 048
  6. LISINOPRIL [Concomitant]
  7. METFORMIN [Concomitant]
  8. ROSIGLITAZONE [Concomitant]
     Dosage: 4MG PER DAY
  9. THYROXINE [Concomitant]
     Dosage: 10MG PER DAY
     Route: 048

REACTIONS (7)
  - ADRENAL INSUFFICIENCY [None]
  - CIRCULATORY COLLAPSE [None]
  - CONFUSIONAL STATE [None]
  - MALAISE [None]
  - RHABDOMYOLYSIS [None]
  - SEPSIS [None]
  - SKIN ULCER [None]
